FAERS Safety Report 8352459-5 (Version None)
Quarter: 2012Q2

REPORT INFORMATION
  Report Type: 
  Country: None (occurrence: None)
  Receive Date: 20120511
  Receipt Date: 20120508
  Transmission Date: 20120825
  Serious: Yes (Death)
  Sender: FDA-Public Use
  Company Number: PHEH2012US009873

PATIENT
  Sex: Male

DRUGS (8)
  1. BENICAR [Concomitant]
  2. AMLODIPINE BESYLATE [Concomitant]
  3. FERROUS SULFATE TAB [Concomitant]
  4. COUMADIN [Concomitant]
  5. METOPROLOL TARTRATE [Concomitant]
  6. TASIGNA [Suspect]
     Indication: CHRONIC MYELOID LEUKAEMIA
     Dosage: 400 MG, BID
     Route: 048
     Dates: start: 20100801
  7. FUROSEMIDE [Concomitant]
  8. PRAVASTATIN [Concomitant]

REACTIONS (1)
  - DEATH [None]
